FAERS Safety Report 15450643 (Version 3)
Quarter: 2019Q3

REPORT INFORMATION
  Report Type: Spontaneous
  Country: US (occurrence: US)
  Receive Date: 20181001
  Receipt Date: 20190812
  Transmission Date: 20191004
  Serious: No
  Sender: FDA-Public Use
  Company Number: US-SA-2018SA271013

PATIENT
  Age: 43 Year
  Sex: Female

DRUGS (1)
  1. DUPIXENT [Suspect]
     Active Substance: DUPILUMAB
     Indication: DERMATITIS ATOPIC
     Dosage: 300 MG, QOW
     Route: 058
     Dates: start: 20180912

REACTIONS (12)
  - Ocular hyperaemia [Unknown]
  - Dry eye [Unknown]
  - Eye swelling [Unknown]
  - Erythema [Unknown]
  - Eye pruritus [Unknown]
  - Skin exfoliation [Unknown]
  - Eczema [Unknown]
  - Erythema [Unknown]
  - Swelling of eyelid [Unknown]
  - Skin irritation [Unknown]
  - Hordeolum [Unknown]
  - Nasopharyngitis [Recovered/Resolved]

NARRATIVE: CASE EVENT DATE: 2018
